FAERS Safety Report 11082445 (Version 3)
Quarter: 2015Q2

REPORT INFORMATION
  Report Type: Report from Study
  Country: AU (occurrence: AU)
  Receive Date: 20150501
  Receipt Date: 20150608
  Transmission Date: 20150821
  Serious: Yes (Other)
  Sender: FDA-Public Use
  Company Number: PHHY2015AU051572

PATIENT
  Age: 42 Year
  Sex: Male

DRUGS (1)
  1. CLOZARIL [Suspect]
     Active Substance: CLOZAPINE
     Indication: SCHIZOPHRENIA
     Dosage: 200 MG, QD
     Route: 048
     Dates: start: 20060206

REACTIONS (16)
  - Myocardial ischaemia [Unknown]
  - Blood iron increased [Recovered/Resolved]
  - Blood alkaline phosphatase increased [Not Recovered/Not Resolved]
  - Dyspnoea [Unknown]
  - Blood triglycerides increased [Unknown]
  - Blood cholesterol increased [Recovered/Resolved]
  - Blood lactate dehydrogenase increased [Not Recovered/Not Resolved]
  - Haemolysis [Recovered/Resolved]
  - Gastrooesophageal reflux disease [Unknown]
  - Chronic obstructive pulmonary disease [Unknown]
  - Anion gap increased [Recovered/Resolved]
  - Blood albumin increased [Recovered/Resolved]
  - Wheezing [Unknown]
  - Haemolysis [Recovered/Resolved]
  - Blood urea decreased [Not Recovered/Not Resolved]
  - QRS axis abnormal [Unknown]

NARRATIVE: CASE EVENT DATE: 20140318
